FAERS Safety Report 16539728 (Version 1)
Quarter: 2019Q3

REPORT INFORMATION
  Report Type: Spontaneous
  Country: US (occurrence: US)
  Receive Date: 20190705
  Receipt Date: 20190705
  Transmission Date: 20191004
  Serious: Yes (Other)
  Sender: FDA-Public Use
  Company Number: None

PATIENT
  Age: 63 Year
  Sex: Male
  Weight: 87.75 kg

DRUGS (10)
  1. SIMVASTATIN 10MG TABLET 1X ER DA [Concomitant]
  2. VITAMIN B12 [Concomitant]
     Active Substance: CYANOCOBALAMIN
  3. AMLODIPINE 10 MG TABLET 1XPER DAY [Concomitant]
  4. HUMALOG INSULIN 14 UNITS 2X PER DAY [Concomitant]
  5. LOSARTAN 50MG TABLET 1XPER DAY [Concomitant]
  6. PANTOPRAZOLE 20 MG DELAYED RELEASE 1X PER DAY [Concomitant]
  7. CARVEDILOL 25MG 1X PER DAY [Concomitant]
  8. TRESIBA 24 UNITS 1X PER DAY [Concomitant]
  9. VITAMIN D [Concomitant]
     Active Substance: VITAMIN D NOS
  10. METFORMIN HCL ER 24HR 500MG TAB GENERIC FOR GLUCOPHAGE [Suspect]
     Active Substance: METFORMIN HYDROCHLORIDE
     Indication: DIABETES MELLITUS
     Dosage: ?          QUANTITY:2 TABLET(S);?
     Route: 048

REACTIONS (2)
  - Diarrhoea [None]
  - Therapy cessation [None]

NARRATIVE: CASE EVENT DATE: 20190107
